FAERS Safety Report 9596829 (Version 1)
Quarter: 2013Q4

REPORT INFORMATION
  Report Type: Spontaneous
  Country: FR (occurrence: FR)
  Receive Date: 20131004
  Receipt Date: 20131004
  Transmission Date: 20140711
  Serious: Yes (Life-Threatening)
  Sender: FDA-Public Use
  Company Number: FR-ABBVIE-13P-056-1152835-00

PATIENT
  Age: 56 Year
  Sex: Male
  Weight: 92 kg

DRUGS (7)
  1. NORVIR [Suspect]
     Indication: HIV INFECTION
  2. TRUVADA [Suspect]
     Indication: HIV INFECTION
     Dates: start: 20130311
  3. PREZISTA [Suspect]
     Indication: HIV INFECTION
  4. ZELITREX [Suspect]
     Indication: PRODUCT USED FOR UNKNOWN INDICATION
  5. TRIMEBUTINE [Suspect]
     Indication: PRODUCT USED FOR UNKNOWN INDICATION
     Dates: start: 20130903
  6. BROMAZEPAM [Suspect]
     Indication: PRODUCT USED FOR UNKNOWN INDICATION
     Dates: start: 20130903
  7. PENTACARINAT [Concomitant]
     Indication: PRODUCT USED FOR UNKNOWN INDICATION
     Dosage: MONTHLY
     Route: 055

REACTIONS (9)
  - Agranulocytosis [Not Recovered/Not Resolved]
  - Weight decreased [Recovering/Resolving]
  - Diarrhoea [Unknown]
  - Haemorrhoids [Unknown]
  - Neutropenia [Unknown]
  - Viral infection [Unknown]
  - Platelet count abnormal [Unknown]
  - Haemoglobin abnormal [Unknown]
  - White blood cell count abnormal [Unknown]
